FAERS Safety Report 23993392 (Version 2)
Quarter: 2024Q3

REPORT INFORMATION
  Report Type: Spontaneous
  Country: US (occurrence: US)
  Receive Date: 20240620
  Receipt Date: 20240814
  Transmission Date: 20241016
  Serious: Yes (Hospitalization, Other)
  Sender: CHATTEM
  Company Number: US-OPELLA-2024OHG021129

PATIENT
  Age: 74 Year
  Sex: Male

DRUGS (1)
  1. TALC [Suspect]
     Active Substance: TALC
     Indication: Product used for unknown indication

REACTIONS (7)
  - Pleural mesothelioma malignant [Unknown]
  - Hypothyroidism [Unknown]
  - Circadian rhythm sleep disorder [Unknown]
  - Decreased appetite [Unknown]
  - Abnormal loss of weight [Unknown]
  - Constipation [Unknown]
  - Dyspnoea [Unknown]
